FAERS Safety Report 24401573 (Version 1)
Quarter: 2024Q4

REPORT INFORMATION
  Report Type: Spontaneous
  Country: TR (occurrence: TR)
  Receive Date: 20241007
  Receipt Date: 20241007
  Transmission Date: 20250114
  Serious: Yes (Hospitalization, Other)
  Sender: NOVO NORDISK
  Company Number: TR-NOVOPROD-1291586

PATIENT
  Sex: Female

DRUGS (4)
  1. INSULIN ASPART\INSULIN DEGLUDEC [Suspect]
     Active Substance: INSULIN ASPART\INSULIN DEGLUDEC
     Indication: Diabetes mellitus
     Dosage: 25 IU, BID
  2. JANUMET [Concomitant]
     Active Substance: METFORMIN HYDROCHLORIDE\SITAGLIPTIN PHOSPHATE
     Dosage: 50 MG, BID
  3. DAPAGLIFLOZIN [Concomitant]
     Active Substance: DAPAGLIFLOZIN
     Dosage: 10 MG, QD
  4. RAMIPRIL [Concomitant]
     Active Substance: RAMIPRIL
     Dosage: 2.5 MG, QD

REACTIONS (6)
  - Lumbar vertebral fracture [Unknown]
  - Fall [Unknown]
  - Neck injury [Unknown]
  - Spinal cord injury [Unknown]
  - Skeletal injury [Unknown]
  - Nerve compression [Unknown]
